FAERS Safety Report 23807175 (Version 1)
Quarter: 2024Q2

REPORT INFORMATION
  Report Type: Spontaneous
  Country: US (occurrence: US)
  Receive Date: 20240502
  Receipt Date: 20240502
  Transmission Date: 20240716
  Serious: No
  Sender: FDA-Public Use
  Company Number: US-RECKITT BENCKISER HEALTHCARE INT LIMITED-RB-083712-2024

PATIENT
  Age: 71 Year
  Sex: Female
  Weight: 68.18 kg

DRUGS (4)
  1. MUCINEX DM [Suspect]
     Active Substance: DEXTROMETHORPHAN HYDROBROMIDE\GUAIFENESIN
     Indication: Nasopharyngitis
     Dosage: 2 TABLETS, QD
     Route: 048
     Dates: start: 20240116, end: 20240118
  2. MUCINEX DM [Suspect]
     Active Substance: DEXTROMETHORPHAN HYDROBROMIDE\GUAIFENESIN
     Dosage: 1 TABLET, QD
     Route: 048
     Dates: start: 20240116, end: 20240118
  3. MUCINEX [Suspect]
     Active Substance: GUAIFENESIN
     Indication: Nasopharyngitis
     Dosage: 2 TABLETS, QD
     Route: 048
     Dates: start: 20240116, end: 20240118
  4. MUCINEX [Suspect]
     Active Substance: GUAIFENESIN
     Dosage: 1 TABLET, QD
     Route: 048
     Dates: start: 20240116, end: 20240118

REACTIONS (2)
  - Product use in unapproved indication [Not Recovered/Not Resolved]
  - Diarrhoea [Not Recovered/Not Resolved]

NARRATIVE: CASE EVENT DATE: 20240116
